FAERS Safety Report 6520722-6 (Version None)
Quarter: 2009Q4

REPORT INFORMATION
  Report Type: 
  Country: None (occurrence: None)
  Receive Date: 20091229
  Receipt Date: 20091215
  Transmission Date: 20100525
  Serious: Yes (Death)
  Sender: FDA-Public Use
  Company Number: US-BIOGENIDEC-2009BI019895

PATIENT
  Age: 34 Year
  Sex: Female

DRUGS (1)
  1. TYSABRI [Suspect]
     Indication: MULTIPLE SCLEROSIS
     Route: 042
     Dates: start: 20080114, end: 20080114

REACTIONS (3)
  - LUNG INFECTION [None]
  - PROGRESSIVE MULTIPLE SCLEROSIS [None]
  - URINARY TRACT INFECTION [None]
